FAERS Safety Report 22064376 (Version 5)
Quarter: 2023Q2

REPORT INFORMATION
  Report Type: Report from Study
  Country: US (occurrence: US)
  Receive Date: 20230306
  Receipt Date: 20230529
  Transmission Date: 20230721
  Serious: No
  Sender: FDA-Public Use
  Company Number: US-002147023-NVSC2023US047462

PATIENT
  Age: 73 Year
  Sex: Male

DRUGS (1)
  1. LEQVIO [Suspect]
     Active Substance: INCLISIRAN SODIUM
     Indication: Product used for unknown indication
     Dosage: UNK
     Route: 058
     Dates: start: 202302

REACTIONS (8)
  - Dizziness postural [Recovering/Resolving]
  - Memory impairment [Unknown]
  - Tension headache [Recovering/Resolving]
  - Abnormal dreams [Unknown]
  - Sleep disorder [Not Recovered/Not Resolved]
  - Insomnia [Recovering/Resolving]
  - Visual impairment [Unknown]
  - Gout [Unknown]

NARRATIVE: CASE EVENT DATE: 20230201
